FAERS Safety Report 25399305 (Version 2)
Quarter: 2025Q2

REPORT INFORMATION
  Report Type: Spontaneous
  Country: CA (occurrence: CA)
  Receive Date: 20250605
  Receipt Date: 20250620
  Transmission Date: 20250716
  Serious: Yes (Other)
  Sender: CELLTRION
  Company Number: CA-CELLTRION INC.-2025CA017421

PATIENT

DRUGS (7)
  1. TRUXIMA [Suspect]
     Active Substance: RITUXIMAB-ABBS
     Indication: Rheumatoid arthritis
     Route: 042
     Dates: start: 20250529
  2. CITALOPRAM [Concomitant]
     Active Substance: CITALOPRAM
  3. BUPROPION [Concomitant]
     Active Substance: BUPROPION
  4. CANDESARTAN [Concomitant]
     Active Substance: CANDESARTAN
  5. RIVOSTATIN [Concomitant]
  6. METHOTREXATE SODIUM [Concomitant]
     Active Substance: METHOTREXATE SODIUM
  7. FOLIC ACID [Concomitant]
     Active Substance: FOLIC ACID

REACTIONS (5)
  - Nephrolithiasis [Unknown]
  - Hypertension [Unknown]
  - Musculoskeletal stiffness [Unknown]
  - Mobility decreased [Unknown]
  - Dyspnoea [Unknown]
